FAERS Safety Report 4301893-9 (Version None)
Quarter: 2004Q1

REPORT INFORMATION
  Report Type: 
  Country: None (occurrence: None)
  Receive Date: 20040223
  Receipt Date: 20010509
  Transmission Date: 20041129
  Serious: Yes (Hospitalization)
  Sender: FDA-Public Use
  Company Number: WAES 01051746

PATIENT
  Age: 78 Year
  Sex: Female

DRUGS (11)
  1. MYLANTA + MYLANTA DS [Concomitant]
     Indication: DYSPEPSIA
     Dates: start: 19910101
  2. OS-CAL [Concomitant]
     Dates: start: 19980513
  3. NEUROTONIN CAPSULES [Concomitant]
     Indication: TREMOR
     Dates: start: 20000401
  4. HYDROCHLOROTHIAZIDE AND TRIAMTERENE [Concomitant]
     Indication: HYPERTENSION
     Dates: start: 19840101
  5. LORAZEPAM [Concomitant]
     Indication: INSOMNIA
     Dates: start: 19930101
  6. PLACEBO (UNSPECIFIED) [Concomitant]
     Indication: OSTEOPOROSIS
     Route: 048
     Dates: start: 19980527, end: 20001230
  7. PLACEBO (UNSPECIFIED) [Concomitant]
     Route: 048
     Dates: start: 20010201, end: 20010318
  8. PRAVASTATIN SODIUM [Concomitant]
     Indication: LIPID METABOLISM DISORDER
     Dates: start: 19950101
  9. PROPOXYPHENE NAPSYLATE [Concomitant]
     Indication: OSTEOARTHRITIS
     Dates: start: 19970501
  10. VIOXX [Suspect]
     Indication: OSTEOARTHRITIS
     Route: 048
     Dates: start: 19990701, end: 20001229
  11. VITAMINS (UNSPECIFIED) [Concomitant]
     Indication: VITAMIN SUPPLEMENTATION
     Dates: start: 19950101

REACTIONS (7)
  - DIARRHOEA [None]
  - DIVERTICULUM [None]
  - GASTRIC ULCER [None]
  - IRRITABLE BOWEL SYNDROME [None]
  - PANCREATITIS [None]
  - TREMOR [None]
  - URINARY TRACT INFECTION [None]
